FAERS Safety Report 9184821 (Version 5)
Quarter: 2013Q4

REPORT INFORMATION
  Report Type: Spontaneous
  Country: NO (occurrence: NO)
  Receive Date: 20130325
  Receipt Date: 20131212
  Transmission Date: 20140711
  Serious: Yes (Death, Life-Threatening)
  Sender: FDA-Public Use
  Company Number: NO-ROCHE-1203940

PATIENT
  Age: 20 Year
  Sex: Female

DRUGS (21)
  1. RIVOTRIL [Suspect]
     Indication: DEPRESSION
     Route: 065
  2. DIAZEPAM [Suspect]
     Indication: PRODUCT USED FOR UNKNOWN INDICATION
     Route: 065
  3. TRAMADOL [Suspect]
     Indication: DEPRESSION
     Route: 065
  4. OXYNORM [Suspect]
     Indication: DEPRESSION
     Route: 065
  5. CIPRAMIL [Suspect]
     Indication: PRODUCT USED FOR UNKNOWN INDICATION
     Route: 065
  6. PINEX FORTE [Suspect]
     Indication: DEPRESSION
     Route: 065
  7. CIPRALEX [Suspect]
     Indication: DEPRESSION
     Route: 065
  8. SAROTEX [Suspect]
     Indication: DEPRESSION
     Route: 065
  9. CATAPRESAN [Suspect]
     Indication: DEPRESSION
     Route: 065
  10. HYDROXYZINE HYDROCHLORIDE [Suspect]
     Indication: DEPRESSION
     Route: 065
  11. REMERON [Suspect]
     Indication: DEPRESSION
     Route: 065
  12. SEROQUEL [Suspect]
     Indication: DEPRESSION
     Route: 065
  13. LAMICTAL [Suspect]
     Indication: DEPRESSION
     Route: 065
  14. NOBLIGAN [Suspect]
     Indication: DEPRESSION
     Route: 065
  15. TRUXAL [Suspect]
     Indication: PRODUCT USED FOR UNKNOWN INDICATION
     Route: 065
  16. LEVOMEPROMAZINE MALEATE [Suspect]
     Indication: DEPRESSION
     Route: 065
  17. SOBRIL [Suspect]
     Indication: PRODUCT USED FOR UNKNOWN INDICATION
     Route: 065
  18. ORFIRIL [Suspect]
     Indication: DEPRESSION
     Route: 065
  19. VIVAL [Suspect]
     Indication: DEPRESSION
     Route: 065
  20. IMOVANE [Suspect]
     Indication: DEPRESSION
     Route: 048
  21. FORTE [Concomitant]

REACTIONS (2)
  - Completed suicide [Fatal]
  - Self injurious behaviour [Unknown]
